FAERS Safety Report 5967096-7 (Version None)
Quarter: 2008Q4

REPORT INFORMATION
  Report Type: 
  Country: None (occurrence: None)
  Receive Date: 20081125
  Receipt Date: 20080922
  Transmission Date: 20090506
  Serious: No
  Sender: FDA-Public Use
  Company Number: US-AMGEN-KDL309091

PATIENT
  Sex: Male

DRUGS (1)
  1. ENBREL [Suspect]
     Indication: SARCOIDOSIS
     Route: 058

REACTIONS (10)
  - ASTHENIA [None]
  - CHILLS [None]
  - FATIGUE [None]
  - FEELING HOT [None]
  - NODULE ON EXTREMITY [None]
  - OEDEMA PERIPHERAL [None]
  - OPEN WOUND [None]
  - PAIN IN EXTREMITY [None]
  - PYREXIA [None]
  - SKIN ULCER [None]
